FAERS Safety Report 20119359 (Version 2)
Quarter: 2021Q4

REPORT INFORMATION
  Report Type: Spontaneous
  Country: US (occurrence: US)
  Receive Date: 20211126
  Receipt Date: 20211201
  Transmission Date: 20220303
  Serious: No
  Sender: FDA-Public Use
  Company Number: US-VIIV HEALTHCARE LIMITED-US2021237552

PATIENT
  Sex: Male

DRUGS (1)
  1. SELZENTRY [Suspect]
     Active Substance: MARAVIROC
     Indication: Post-acute COVID-19 syndrome
     Dosage: 150 MG (150 MG TAB 60)

REACTIONS (1)
  - Off label use [Not Recovered/Not Resolved]
